FAERS Safety Report 18686307 (Version 1)
Quarter: 2020Q4

REPORT INFORMATION
  Report Type: Other
  Country: CA (occurrence: CA)
  Receive Date: 20201231
  Receipt Date: 20201231
  Transmission Date: 20210114
  Serious: Yes (Other)
  Sender: FDA-Public Use
  Company Number: CA-APOTEX-2020AP024873

PATIENT
  Age: 44 Year
  Sex: Male

DRUGS (7)
  1. SANDOSTATIN LAR DEPOT [Suspect]
     Active Substance: OCTREOTIDE ACETATE
     Dosage: 30 MILLIGRAM, Q.M.T.
     Route: 030
  2. PANCREATIN [Concomitant]
     Active Substance: PANCRELIPASE
     Indication: PRODUCT USED FOR UNKNOWN INDICATION
     Dosage: UNK, QD
     Route: 048
  3. SYNTHROID [Concomitant]
     Active Substance: LEVOTHYROXINE SODIUM
     Dosage: 212 MILLIGRAM, QD
     Route: 048
  4. MOMETASONE [Suspect]
     Active Substance: MOMETASONE
     Indication: SINUSITIS
     Route: 065
  5. ERGOCALCIFEROL. [Suspect]
     Active Substance: ERGOCALCIFEROL
     Indication: PRODUCT USED FOR UNKNOWN INDICATION
     Dosage: 1000 INTERNATIONAL UNIT
     Route: 048
  6. SANDOSTATIN LAR DEPOT [Suspect]
     Active Substance: OCTREOTIDE ACETATE
     Indication: ACROMEGALY
     Dosage: 20 MILLIGRAM, Q.M.T.
     Route: 030
  7. SYNTHROID [Concomitant]
     Active Substance: LEVOTHYROXINE SODIUM
     Indication: PRODUCT USED FOR UNKNOWN INDICATION
     Dosage: 0.255 MILLIGRAM, QD
     Route: 065

REACTIONS (24)
  - Nasopharyngitis [Unknown]
  - Eye irritation [Unknown]
  - Hunger [Unknown]
  - Hypoaesthesia [Unknown]
  - Pneumonia [Unknown]
  - Abdominal pain [Unknown]
  - Tremor [Unknown]
  - Pulmonary congestion [Unknown]
  - Cough [Unknown]
  - Headache [Unknown]
  - Dizziness [Unknown]
  - Bronchitis [Unknown]
  - Ear infection [Unknown]
  - Malaise [Unknown]
  - Asthenia [Unknown]
  - Body temperature decreased [Unknown]
  - Hypoglycaemia [Unknown]
  - Otitis externa [Unknown]
  - Sinusitis [Unknown]
  - Hyperhidrosis [Unknown]
  - Abdominal discomfort [Unknown]
  - Dyspepsia [Unknown]
  - Ocular hyperaemia [Unknown]
  - Abdominal pain upper [Unknown]
